FAERS Safety Report 23887758 (Version 1)
Quarter: 2024Q2

REPORT INFORMATION
  Report Type: Other
  Country: CA (occurrence: None)
  Receive Date: 20240523
  Receipt Date: 20240523
  Transmission Date: 20240716
  Serious: Yes (Other)
  Sender: FDA-Public Use
  Company Number: CA-ROCHE-3499433

PATIENT
  Sex: Male

DRUGS (9)
  1. ACTEMRA [Suspect]
     Active Substance: TOCILIZUMAB
     Indication: Rheumatoid arthritis
     Dosage: PIRS NOT RECEIVED; DOSE NOTED ACCORDING TO PRESCRIPTION
     Route: 042
     Dates: start: 20220929, end: 20231001
  2. CRESTOR [Concomitant]
     Active Substance: ROSUVASTATIN CALCIUM
  3. CYMBALTA [Concomitant]
     Active Substance: DULOXETINE HYDROCHLORIDE
  4. FOLIC ACID [Concomitant]
     Active Substance: FOLIC ACID
  5. INSULIN NOS [Concomitant]
     Active Substance: INSULIN NOS
  6. PREVACID [Concomitant]
     Active Substance: LANSOPRAZOLE
  7. SULFASALAZINE [Concomitant]
     Active Substance: SULFASALAZINE
  8. ASPIRIN [Concomitant]
     Active Substance: ASPIRIN
  9. METHOTREXATE [Concomitant]
     Active Substance: METHOTREXATE

REACTIONS (2)
  - Spinal disorder [Unknown]
  - Osteomyelitis [Unknown]
